FAERS Safety Report 8527068 (Version 4)
Quarter: 2012Q4

REPORT INFORMATION
  Report Type: 
  Country: US (occurrence: US)
  Receive Date: 20120424
  Receipt Date: 20121026
  Transmission Date: 20130627
  Serious: No
  Sender: FDA-Public Use
  Company Number: US-PFIZER INC-2012097812

PATIENT
  Age: 65 Year
  Sex: Male
  Weight: 113 kg

DRUGS (6)
  1. SUTENT [Suspect]
     Indication: RENAL CELL CARCINOMA
     Dosage: 50 mg, 1x/day
     Route: 048
     Dates: start: 201201
  2. SUTENT [Suspect]
     Indication: LUNG NEOPLASM MALIGNANT
     Dosage: 50 mg, daily
     Route: 048
     Dates: start: 20120320, end: 20120604
  3. SUTENT [Suspect]
     Dosage: 25 mg, daily
     Route: 048
     Dates: end: 20120827
  4. INSULIN [Suspect]
     Indication: DIABETES MELLITUS
     Dosage: UNK
  5. LISINOPRIL [Concomitant]
     Indication: HYPERTENSION
     Dosage: 10 mg, 1x/day
  6. ZOCOR [Concomitant]
     Indication: BLOOD CHOLESTEROL INCREASED
     Dosage: 20 mg, 1x/day

REACTIONS (14)
  - Disease progression [Unknown]
  - Renal cancer [Unknown]
  - Nausea [Not Recovered/Not Resolved]
  - Gingival bleeding [Not Recovered/Not Resolved]
  - Skin haemorrhage [Not Recovered/Not Resolved]
  - Genital rash [Not Recovered/Not Resolved]
  - Ageusia [Not Recovered/Not Resolved]
  - Dysgeusia [Not Recovered/Not Resolved]
  - Headache [Not Recovered/Not Resolved]
  - Somnolence [Not Recovered/Not Resolved]
  - Skin exfoliation [Not Recovered/Not Resolved]
  - Pruritus [Not Recovered/Not Resolved]
  - Contusion [Not Recovered/Not Resolved]
  - Weight increased [Not Recovered/Not Resolved]
